FAERS Safety Report 17595249 (Version 12)
Quarter: 2024Q2

REPORT INFORMATION
  Report Type: Spontaneous
  Country: GR (occurrence: GR)
  Receive Date: 20200328
  Receipt Date: 20240502
  Transmission Date: 20240716
  Serious: Yes (Hospitalization, Other)
  Sender: FDA-Public Use
  Company Number: NVSC2020GR085606

PATIENT
  Age: 43 Year
  Sex: Male

DRUGS (27)
  1. MYCOPHENOLIC ACID [Suspect]
     Active Substance: MYCOPHENOLIC ACID
     Indication: IgA nephropathy
     Dosage: UNK
     Route: 065
  2. METHYLPREDNISOLONE [Suspect]
     Active Substance: METHYLPREDNISOLONE
     Indication: IgA nephropathy
     Dosage: 8 MG, QD
     Route: 065
  3. METHYLPREDNISOLONE [Suspect]
     Active Substance: METHYLPREDNISOLONE
     Dosage: 8 MG, QD
     Route: 065
  4. METHYLPREDNISOLONE [Suspect]
     Active Substance: METHYLPREDNISOLONE
     Dosage: 8 MG, QD
     Route: 065
  5. DEXAMETHASONE [Suspect]
     Active Substance: DEXAMETHASONE
     Indication: Haemophagocytic lymphohistiocytosis
     Dosage: 10 MG/M2, QD
     Route: 065
  6. DEXAMETHASONE [Suspect]
     Active Substance: DEXAMETHASONE
     Dosage: 10 MG/M2, QD
     Route: 065
  7. DEXAMETHASONE [Suspect]
     Active Substance: DEXAMETHASONE
     Dosage: 10 MG/M2, QD
     Route: 065
  8. VALGANCICLOVIR [Concomitant]
     Active Substance: VALGANCICLOVIR
     Indication: Product used for unknown indication
     Dosage: 900 MG, BID
     Route: 065
  9. APIXABAN [Concomitant]
     Active Substance: APIXABAN
     Indication: Anticoagulant therapy
     Dosage: UNK
     Route: 065
  10. APIXABAN [Concomitant]
     Active Substance: APIXABAN
     Dosage: UNK
     Route: 065
  11. MOXIFLOXACIN [Concomitant]
     Active Substance: MOXIFLOXACIN
     Indication: Product used for unknown indication
     Dosage: 400 MG, QD
     Route: 065
  12. SULFAMETHOXAZOLE\TRIMETHOPRIM [Concomitant]
     Active Substance: SULFAMETHOXAZOLE\TRIMETHOPRIM
     Indication: Product used for unknown indication
     Dosage: 960 MG, TID
     Route: 065
  13. PIPERACILLIN SODIUM\TAZOBACTAM SODIUM [Concomitant]
     Active Substance: PIPERACILLIN SODIUM\TAZOBACTAM SODIUM
     Indication: Product used for unknown indication
     Dosage: UNK
     Route: 065
  14. PIPERACILLIN SODIUM\TAZOBACTAM SODIUM [Concomitant]
     Active Substance: PIPERACILLIN SODIUM\TAZOBACTAM SODIUM
     Dosage: UNK
     Route: 065
  15. MEROPENEM [Concomitant]
     Active Substance: MEROPENEM
     Indication: Bacterial infection
     Dosage: 2 G, BID
     Route: 065
  16. GENTAMICIN [Concomitant]
     Active Substance: GENTAMICIN
     Indication: Product used for unknown indication
     Dosage: 280 MG, QD
     Route: 065
  17. ACYCLOVIR [Concomitant]
     Active Substance: ACYCLOVIR
     Indication: Product used for unknown indication
     Dosage: 750 MG, TID
     Route: 065
  18. BISOPROLOL [Concomitant]
     Active Substance: BISOPROLOL\BISOPROLOL FUMARATE
     Indication: Arrhythmia prophylaxis
     Dosage: UNK
     Route: 065
  19. BISOPROLOL [Concomitant]
     Active Substance: BISOPROLOL\BISOPROLOL FUMARATE
     Dosage: UNK
     Route: 065
  20. LINEZOLID [Concomitant]
     Active Substance: LINEZOLID
     Indication: Product used for unknown indication
     Dosage: UNK
     Route: 065
  21. LINEZOLID [Concomitant]
     Active Substance: LINEZOLID
     Dosage: UNK
     Route: 065
  22. AMPICILLIN [Concomitant]
     Active Substance: AMPICILLIN
     Indication: Product used for unknown indication
     Dosage: 2 G, QID
     Route: 065
  23. FILGRASTIM [Concomitant]
     Active Substance: FILGRASTIM
     Indication: Pancytopenia
     Dosage: UNK
     Route: 065
  24. FILGRASTIM [Concomitant]
     Active Substance: FILGRASTIM
     Dosage: UNK
     Route: 065
  25. TEICOPLANIN [Concomitant]
     Active Substance: TEICOPLANIN
     Indication: Bacterial infection
     Dosage: UNK
     Route: 065
  26. TEICOPLANIN [Concomitant]
     Active Substance: TEICOPLANIN
     Dosage: UNK
     Route: 065
  27. HUMAN NORM IGG [Concomitant]
     Indication: Product used for unknown indication
     Route: 065

REACTIONS (14)
  - Leishmaniasis [Recovered/Resolved]
  - Bacillus infection [Unknown]
  - Haemophagocytic lymphohistiocytosis [Recovered/Resolved]
  - Encephalitis brain stem [Recovered/Resolved]
  - Listeriosis [Recovered/Resolved]
  - Cytomegalovirus infection [Recovered/Resolved]
  - B-lymphocyte count decreased [Recovering/Resolving]
  - Secondary immunodeficiency [Recovered/Resolved]
  - Blood immunoglobulin G decreased [Recovered/Resolved]
  - Blood immunoglobulin M decreased [Recovered/Resolved]
  - Infection [Recovered/Resolved]
  - Visceral leishmaniasis [Recovered/Resolved]
  - Product use in unapproved indication [Unknown]
  - Off label use [Unknown]
